FAERS Safety Report 9650269 (Version 1)
Quarter: 2013Q4

REPORT INFORMATION
  Report Type: Spontaneous
  Country: US (occurrence: US)
  Receive Date: 20131028
  Receipt Date: 20131028
  Transmission Date: 20140711
  Serious: No
  Sender: FDA-Public Use
  Company Number: US-PURDUE-USA-2013-0099237

PATIENT
  Age: 60 Year
  Sex: Female

DRUGS (2)
  1. OXYCONTIN (NDA 22-272) [Suspect]
     Indication: BACK PAIN
     Dosage: 10 MG, Q8H
     Route: 048
     Dates: start: 201301, end: 201302
  2. OXYCODONE HCL IR CAPSULES [Concomitant]
     Indication: BACK PAIN
     Dosage: 5 MG, QID
     Route: 048
     Dates: start: 2008

REACTIONS (3)
  - Migraine [Recovered/Resolved]
  - Drug ineffective [Recovered/Resolved]
  - Abdominal discomfort [Recovered/Resolved]
